FAERS Safety Report 20578500 (Version 1)
Quarter: 2022Q1

REPORT INFORMATION
  Report Type: Spontaneous
  Country: US (occurrence: US)
  Receive Date: 20220310
  Receipt Date: 20220310
  Transmission Date: 20220423
  Serious: No
  Sender: FDA-Public Use
  Company Number: US-PFIZER INC-202200240718

PATIENT
  Age: 34 Year
  Sex: Female
  Weight: 84.37 kg

DRUGS (1)
  1. GEODON [Suspect]
     Active Substance: ZIPRASIDONE HYDROCHLORIDE\ZIPRASIDONE MESYLATE
     Dosage: UNK

REACTIONS (7)
  - Feeling abnormal [Unknown]
  - Skin exfoliation [Unknown]
  - Burning sensation [Unknown]
  - Agitation [Unknown]
  - Psychotic disorder [Unknown]
  - Akathisia [Unknown]
  - Photophobia [Unknown]
